FAERS Safety Report 20737417 (Version 2)
Quarter: 2022Q2

REPORT INFORMATION
  Report Type: Spontaneous
  Country: IN (occurrence: IN)
  Receive Date: 20220421
  Receipt Date: 20220623
  Transmission Date: 20220721
  Serious: Yes (Other)
  Sender: FDA-Public Use
  Company Number: IN-PFIZER INC-202100982700

PATIENT
  Age: 53 Year
  Sex: Female
  Weight: 57.7 kg

DRUGS (1)
  1. DACOMITINIB [Suspect]
     Active Substance: DACOMITINIB
     Dosage: 30 MG, 1X/DAY
     Route: 048
     Dates: start: 20210708

REACTIONS (13)
  - Carcinoembryonic antigen increased [Unknown]
  - Pulmonary fibrosis [Unknown]
  - Diarrhoea [Unknown]
  - Rash [Unknown]
  - Swelling [Unknown]
  - Pruritus [Unknown]
  - Erythema [Unknown]
  - Blood pressure increased [Unknown]
  - Protein total increased [Unknown]
  - Weight decreased [Unknown]
  - Heart rate decreased [Unknown]
  - Aspartate aminotransferase increased [Unknown]
  - Alanine aminotransferase increased [Unknown]

NARRATIVE: CASE EVENT DATE: 20210729
